FAERS Safety Report 22203706 (Version 1)
Quarter: 2023Q2

REPORT INFORMATION
  Report Type: Spontaneous
  Country: CN (occurrence: CN)
  Receive Date: 20230412
  Receipt Date: 20230412
  Transmission Date: 20230722
  Serious: Yes (Death)
  Sender: FDA-Public Use
  Company Number: CN-MLMSERVICE-20230331-4197280-1

PATIENT
  Age: 48 Year
  Sex: Male

DRUGS (4)
  1. PREDNISOLONE [Suspect]
     Active Substance: PREDNISOLONE
     Indication: Philadelphia positive acute lymphocytic leukaemia
     Route: 065
     Dates: start: 2022
  2. PIRARUBICIN [Suspect]
     Active Substance: PIRARUBICIN
     Indication: Philadelphia positive acute lymphocytic leukaemia
     Route: 065
     Dates: start: 2022
  3. CYCLOPHOSPHAMIDE [Suspect]
     Active Substance: CYCLOPHOSPHAMIDE
     Indication: Philadelphia positive acute lymphocytic leukaemia
     Route: 065
     Dates: start: 2022
  4. VINCRISTINE [Suspect]
     Active Substance: VINCRISTINE
     Indication: Philadelphia positive acute lymphocytic leukaemia
     Route: 065
     Dates: start: 2022

REACTIONS (4)
  - Septic shock [Fatal]
  - Escherichia infection [Fatal]
  - Pneumonia [Fatal]
  - Agranulocytosis [Fatal]

NARRATIVE: CASE EVENT DATE: 20220101
